FAERS Safety Report 12276286 (Version 1)
Quarter: 2016Q2

REPORT INFORMATION
  Report Type: Spontaneous
  Country: NO (occurrence: NO)
  Receive Date: 20160418
  Receipt Date: 20160418
  Transmission Date: 20160815
  Serious: Yes (Hospitalization, Disabling)
  Sender: FDA-Public Use
  Company Number: NO-ACTAVIS-2016-07922

PATIENT
  Age: 23 Year
  Sex: Male

DRUGS (4)
  1. CISORDINOL                         /00876702/ [Concomitant]
     Active Substance: ZUCLOPENTHIXOL
     Indication: PRODUCT USED FOR UNKNOWN INDICATION
     Dosage: 200 MG, EVERY 14TH DAY
     Route: 065
  2. CLOZAPINE (UNKNOWN) [Suspect]
     Active Substance: CLOZAPINE
     Indication: SCHIZOPHRENIA
     Dosage: UNK UNK, UNKNOWN
     Route: 065
     Dates: start: 20040831, end: 20040913
  3. LEPONEX [Suspect]
     Active Substance: CLOZAPINE
     Indication: SCHIZOPHRENIA
     Dosage: UNK UNK, UNKNOWN
     Route: 065
     Dates: start: 20040831, end: 20040913
  4. RISPERDAL [Concomitant]
     Active Substance: RISPERIDONE
     Indication: PRODUCT USED FOR UNKNOWN INDICATION
     Dosage: 37.5 MG, EVERY 14TH DAY
     Route: 065

REACTIONS (3)
  - Cardiomyopathy [Unknown]
  - Interstitial lung disease [Unknown]
  - Myocarditis [Unknown]

NARRATIVE: CASE EVENT DATE: 20040909
